FAERS Safety Report 9450647 (Version 1)
Quarter: 2013Q3

REPORT INFORMATION
  Report Type: Spontaneous
  Country: TR (occurrence: None)
  Receive Date: 20130807
  Receipt Date: 20130807
  Transmission Date: 20140515
  Serious: Yes (Hospitalization)
  Sender: FDA-Public Use
  Company Number: FK201302964

PATIENT
  Sex: Female

DRUGS (1)
  1. ACYCLOVIR SODIUM (MANUFACTURER UNKNOWN) (ACYCLOVIR SODIUM) (ACYCLOVIR SODIUM) [Suspect]
     Indication: ENCEPHALITIS
     Dosage: IN THREE DIVIDED DOSES
     Route: 042

REACTIONS (3)
  - Tubulointerstitial nephritis [None]
  - Renal tubular necrosis [None]
  - Renal failure acute [None]
